FAERS Safety Report 8941945 (Version 1)
Quarter: 2012Q4

REPORT INFORMATION
  Report Type: 
  Country: US (occurrence: US)
  Receive Date: 20121130
  Receipt Date: 20121130
  Transmission Date: 20130627
  Serious: No
  Sender: FDA-Public Use
  Company Number: US-009507513-1211USA012799

PATIENT
  Age: 50 Year
  Sex: Female
  Weight: 83.9 kg

DRUGS (2)
  1. CLARITIN-D 24 HOUR [Suspect]
     Indication: SEASONAL ALLERGY
     Dosage: 10 mg, qd
     Route: 048
  2. CLARITIN-D 24 HOUR [Suspect]
     Dosage: 10 mg, qd
     Route: 048
     Dates: start: 20121015, end: 20121016

REACTIONS (1)
  - Overdose [Recovering/Resolving]
